FAERS Safety Report 10671750 (Version 1)
Quarter: 2014Q4

REPORT INFORMATION
  Report Type: Spontaneous
  Country: US (occurrence: None)
  Receive Date: 20141222
  Receipt Date: 20141222
  Transmission Date: 20150529
  Serious: No
  Sender: FDA-Public Use
  Company Number: None

PATIENT
  Age: 47 Year
  Sex: Female

DRUGS (1)
  1. CREST PRO-HEALTH (CETYLPYRIDINIUM) [Suspect]
     Active Substance: CETYLPYRIDINIUM CHLORIDE
     Route: 048
     Dates: start: 201405, end: 201405

REACTIONS (2)
  - Burning sensation [None]
  - Hypoaesthesia oral [None]

NARRATIVE: CASE EVENT DATE: 201405
